FAERS Safety Report 6671808-7 (Version None)
Quarter: 2010Q2

REPORT INFORMATION
  Report Type: 
  Country: None (occurrence: None)
  Receive Date: 20100407
  Receipt Date: 20100331
  Transmission Date: 20101027
  Serious: Yes (Hospitalization)
  Sender: FDA-Public Use
  Company Number: PL-ROCHE-682569

PATIENT
  Sex: Male
  Weight: 110 kg

DRUGS (4)
  1. INTERFERON ALFA [Suspect]
     Indication: RENAL CANCER METASTATIC
     Route: 058
     Dates: start: 20090928, end: 20100118
  2. BEVACIZUMAB [Suspect]
     Indication: RENAL CANCER METASTATIC
     Route: 042
     Dates: start: 20090928, end: 20100118
  3. POLPRAZOL [Concomitant]
     Indication: PROPHYLAXIS
     Dates: start: 20100111
  4. KETOPROFEN [Concomitant]
     Indication: PAIN
     Dates: start: 20100111

REACTIONS (1)
  - PULMONARY EMBOLISM [None]
